FAERS Safety Report 9122868 (Version 1)
Quarter: 2013Q1

REPORT INFORMATION
  Report Type: Spontaneous
  Country: US (occurrence: US)
  Receive Date: 20130227
  Receipt Date: 20130227
  Transmission Date: 20140127
  Serious: No
  Sender: FDA-Public Use
  Company Number: US-GLAXOSMITHKLINE-A0969577A

PATIENT
  Age: 68 Year
  Sex: Female
  Weight: 65.9 kg

DRUGS (1)
  1. VALACYCLOVIR [Suspect]
     Indication: HERPES ZOSTER
     Dosage: 500MG THREE TIMES PER DAY
     Route: 065
     Dates: start: 201202

REACTIONS (1)
  - Drug ineffective [Not Recovered/Not Resolved]
